FAERS Safety Report 22935105 (Version 2)
Quarter: 2024Q3

REPORT INFORMATION
  Report Type: Spontaneous
  Country: US (occurrence: US)
  Receive Date: 20230912
  Receipt Date: 20240925
  Transmission Date: 20241017
  Serious: No
  Sender: SANOFI AVENTIS
  Company Number: US-SA-SAC20230907000492

PATIENT
  Age: 26 Year
  Sex: Female
  Weight: 47.627 kg

DRUGS (4)
  1. DUPIXENT [Suspect]
     Active Substance: DUPILUMAB
     Indication: Dermatitis atopic
     Dosage: 300 MG, QOW
     Route: 058
  2. TYLENOL [Concomitant]
     Active Substance: ACETAMINOPHEN
     Dosage: UNK
  3. BENADRYL [Concomitant]
     Active Substance: DIPHENHYDRAMINE HYDROCHLORIDE
     Dosage: UNK
  4. VITAMINS NOS [Concomitant]
     Active Substance: VITAMINS
     Dosage: UNK

REACTIONS (7)
  - Stress [Recovering/Resolving]
  - Dry skin [Recovering/Resolving]
  - Skin fissures [Recovering/Resolving]
  - Product dose omission issue [Unknown]
  - Skin exfoliation [Recovering/Resolving]
  - Pruritus [Recovering/Resolving]
  - Dermatitis atopic [Recovering/Resolving]

NARRATIVE: CASE EVENT DATE: 20230801
